FAERS Safety Report 17654769 (Version 1)
Quarter: 2020Q2

REPORT INFORMATION
  Report Type: Spontaneous
  Country: US (occurrence: US)
  Receive Date: 20200410
  Receipt Date: 20200410
  Transmission Date: 20200713
  Serious: Yes (Hospitalization, Other)
  Sender: FDA-Public Use
  Company Number: US-BAYER-2020-056341

PATIENT
  Age: 89 Year
  Sex: Male

DRUGS (10)
  1. LATANOPROST. [Concomitant]
     Active Substance: LATANOPROST
  2. LOPERAMIDE [Concomitant]
     Active Substance: LOPERAMIDE
  3. MIRTAZAPINE. [Concomitant]
     Active Substance: MIRTAZAPINE
  4. ACETYLSALICYLIC ACID [Suspect]
     Active Substance: ASPIRIN
  5. SIMVASTATIN. [Concomitant]
     Active Substance: SIMVASTATIN
  6. CHOLECALCIFEROL [Concomitant]
     Active Substance: CHOLECALCIFEROL
  7. CIPROFLOXACIN. [Suspect]
     Active Substance: CIPROFLOXACIN
  8. ATROPINE. [Concomitant]
     Active Substance: ATROPINE
  9. DIPHENOXYLATE [Concomitant]
     Active Substance: DIPHENOXYLATE
  10. MULTIVITAMINS [VITAMINS NOS] [Concomitant]
     Active Substance: VITAMINS

REACTIONS (5)
  - Clostridium difficile colitis [None]
  - Colitis ulcerative [None]
  - Cytomegalovirus colitis [None]
  - Large intestinal ulcer haemorrhage [None]
  - Diverticulum intestinal [None]
